FAERS Safety Report 22060524 (Version 1)
Quarter: 2023Q1

REPORT INFORMATION
  Report Type: Spontaneous
  Country: US (occurrence: US)
  Receive Date: 20230303
  Receipt Date: 20230303
  Transmission Date: 20230417
  Serious: Yes (Other)
  Sender: FDA-Public Use
  Company Number: US-JNJFOC-20230254029

PATIENT
  Age: 46 Year
  Sex: Male

DRUGS (2)
  1. SPRAVATO [Suspect]
     Active Substance: ESKETAMINE
     Indication: Major depression
     Dosage: 56 MG, 9 DOSES
     Dates: start: 20201204, end: 20201230
  2. SPRAVATO [Suspect]
     Active Substance: ESKETAMINE
     Dosage: 84 MG, 98 DOSES; WAS ON ONCE WEEKLY DOSING AT THE TIME OF REPORT
     Dates: start: 20210106, end: 20230217

REACTIONS (2)
  - Hallucination [Unknown]
  - Dissociation [Unknown]
